FAERS Safety Report 12767738 (Version 1)
Quarter: 2016Q3

REPORT INFORMATION
  Report Type: Spontaneous
  Country: US (occurrence: US)
  Receive Date: 20160921
  Receipt Date: 20160921
  Transmission Date: 20161109
  Serious: No
  Sender: FDA-Public Use
  Company Number: US-UPSHER-SMITH LABORATORIES, INC.-16001183

PATIENT
  Age: 35 Year

DRUGS (6)
  1. XYZAL [Concomitant]
     Active Substance: LEVOCETIRIZINE DIHYDROCHLORIDE
     Indication: MULTIPLE ALLERGIES
     Dosage: UNK, UNK
  2. EPIPEN [Concomitant]
     Active Substance: EPINEPHRINE
     Indication: HYPERSENSITIVITY
     Dosage: UNK, PRN
     Route: 030
  3. BENADRYL [Concomitant]
     Active Substance: DIPHENHYDRAMINE HYDROCHLORIDE
     Indication: ANAPHYLACTIC REACTION
     Dosage: 50 MG, PRN
     Route: 048
  4. TESTOSTERONE. [Suspect]
     Active Substance: TESTOSTERONE
     Indication: HYPOGONADISM
     Dosage: 50 MG, ONCE
     Route: 061
     Dates: start: 20160602, end: 20160602
  5. ZETONNA [Concomitant]
     Active Substance: CICLESONIDE
     Indication: MULTIPLE ALLERGIES
     Dosage: UNK, UNK
     Route: 045
  6. PREDNISONE. [Concomitant]
     Active Substance: PREDNISONE
     Indication: ANAPHYLACTIC REACTION
     Dosage: 20 MG, PRN
     Route: 048

REACTIONS (1)
  - Dermatitis contact [Recovered/Resolved]

NARRATIVE: CASE EVENT DATE: 20160602
